FAERS Safety Report 4602965-1 (Version None)
Quarter: 2005Q1

REPORT INFORMATION
  Report Type: 
  Country: None (occurrence: None)
  Receive Date: 20050307
  Receipt Date: 20050223
  Transmission Date: 20050727
  Serious: Yes (Other)
  Sender: FDA-Public Use
  Company Number: CHNY2005DE00497

PATIENT
  Age: 63 Year
  Sex: Female
  Weight: 68 kg

DRUGS (3)
  1. NICOTINE [Suspect]
     Indication: SMOKING CESSATION THERAPY
     Dosage: 21 MG, QD, TRANSDERMAL
     Route: 062
     Dates: start: 20041228, end: 20050105
  2. METOHEXAL (METOPROLOL TARTRATE) [Concomitant]
  3. AMARYL [Concomitant]

REACTIONS (9)
  - ARRHYTHMIA [None]
  - BALANCE DISORDER [None]
  - BLOOD PRESSURE INCREASED [None]
  - CARDIOVASCULAR DISORDER [None]
  - DYSGEUSIA [None]
  - FACIAL PALSY [None]
  - NAUSEA [None]
  - SENSORY DISTURBANCE [None]
  - SPEECH DISORDER [None]
